FAERS Safety Report 8911519 (Version 1)
Quarter: 2012Q4

REPORT INFORMATION
  Report Type: 
  Country: US (occurrence: US)
  Receive Date: 20121115
  Receipt Date: 20121115
  Transmission Date: 20130627
  Serious: No
  Sender: FDA-Public Use
  Company Number: US-PFIZER INC-2012284883

PATIENT
  Age: 40 Year
  Sex: Female
  Weight: 118 kg

DRUGS (2)
  1. NEURONTIN [Suspect]
     Indication: QUADRIPLEGIA
     Dosage: 600 mg, 3x/day
     Route: 048
     Dates: start: 201202
  2. BACLOFEN [Concomitant]
     Dosage: UNK

REACTIONS (1)
  - Peripheral coldness [Not Recovered/Not Resolved]
